FAERS Safety Report 14402612 (Version 18)
Quarter: 2019Q4

REPORT INFORMATION
  Report Type: Spontaneous
  Country: US (occurrence: US)
  Receive Date: 20180117
  Receipt Date: 20191224
  Transmission Date: 20200122
  Serious: Yes (Hospitalization, Other)
  Sender: FDA-Public Use
  Company Number: US-ACTELION-A-NJ2018-165918

PATIENT
  Age: 77 Year
  Sex: Male
  Weight: 67.12 kg

DRUGS (7)
  1. SILDENAFIL. [Concomitant]
     Active Substance: SILDENAFIL
  2. VELETRI [Suspect]
     Active Substance: EPOPROSTENOL
     Dosage: 22.7 NG/KG, PER MIN
     Route: 042
  3. OPSUMIT [Suspect]
     Active Substance: MACITENTAN
     Indication: PULMONARY ARTERIAL HYPERTENSION
     Dosage: 10 MG, QD
     Route: 048
     Dates: start: 20160523
  4. VELETRI [Suspect]
     Active Substance: EPOPROSTENOL
     Dosage: 30 NG/KG, PER MIN
     Route: 042
  5. VELETRI [Suspect]
     Active Substance: EPOPROSTENOL
     Dosage: 37 NG/KG, PER MIN
     Route: 042
  6. VELETRI [Suspect]
     Active Substance: EPOPROSTENOL
     Dosage: 25 NG/KG, PER MIN
     Route: 042
  7. VELETRI [Suspect]
     Active Substance: EPOPROSTENOL
     Indication: PULMONARY ARTERIAL HYPERTENSION
     Dosage: 37.5 NG/KG, PER MIN
     Route: 042

REACTIONS (16)
  - Fluid retention [Unknown]
  - Rhinorrhoea [Unknown]
  - Pain in jaw [Unknown]
  - Dermatitis contact [Unknown]
  - Fluid overload [Unknown]
  - Abdominal distension [Unknown]
  - Diarrhoea [Unknown]
  - Ill-defined disorder [Unknown]
  - Catheter management [Unknown]
  - Blood iron decreased [Unknown]
  - Cellulitis [Unknown]
  - Catheter site erythema [Unknown]
  - Vertigo [Unknown]
  - Oxygen saturation decreased [Unknown]
  - Multiple allergies [Unknown]
  - Blood blister [Unknown]

NARRATIVE: CASE EVENT DATE: 201712
